FAERS Safety Report 21719499 (Version 1)
Quarter: 2022Q4

REPORT INFORMATION
  Report Type: Spontaneous
  Country: US (occurrence: US)
  Receive Date: 20221213
  Receipt Date: 20221213
  Transmission Date: 20230112
  Serious: No
  Sender: FDA-Public Use
  Company Number: MIQ-02082022-670

PATIENT
  Sex: Female

DRUGS (3)
  1. IVERMECTIN [Suspect]
     Active Substance: IVERMECTIN
     Indication: COVID-19 prophylaxis
     Dosage: UNK (6 TABLETS), QD
  2. IVERMECTIN [Suspect]
     Active Substance: IVERMECTIN
     Dosage: UNK (6 TABLETS), QD
  3. IVERMECTIN [Suspect]
     Active Substance: IVERMECTIN
     Dosage: UNK (6 TABLETS), QOW

REACTIONS (1)
  - Product use in unapproved indication [Unknown]
